FAERS Safety Report 21643492 (Version 1)
Quarter: 2022Q4

REPORT INFORMATION
  Report Type: Report from Study
  Country: FR (occurrence: FR)
  Receive Date: 20221125
  Receipt Date: 20221125
  Transmission Date: 20230112
  Serious: Yes (Other)
  Sender: FDA-Public Use
  Company Number: FR-SA-SAC20221122001273

PATIENT
  Age: 54 Year
  Sex: Male
  Weight: 75 kg

DRUGS (8)
  1. ISATUXIMAB [Suspect]
     Active Substance: ISATUXIMAB
     Indication: Plasma cell myeloma refractory
     Dosage: 700 MG, QD
     Dates: start: 20220211, end: 20220211
  2. ISATUXIMAB [Suspect]
     Active Substance: ISATUXIMAB
     Dosage: 750 MG, QD
     Dates: start: 20221107, end: 20221107
  3. POMALIDOMIDE [Suspect]
     Active Substance: POMALIDOMIDE
     Indication: Plasma cell myeloma refractory
     Dosage: 3 MG, QD
     Dates: start: 20220211, end: 20220211
  4. POMALIDOMIDE [Suspect]
     Active Substance: POMALIDOMIDE
     Dosage: 3 MG, QD
     Dates: start: 20221118, end: 20221118
  5. CARFILZOMIB [Suspect]
     Active Substance: CARFILZOMIB
     Indication: Plasma cell myeloma refractory
     Dosage: 37.2 MG, QD
     Dates: start: 20220211, end: 20220211
  6. CARFILZOMIB [Suspect]
     Active Substance: CARFILZOMIB
     Dosage: 37.2 MG, QD
     Dates: start: 20220212, end: 20220212
  7. DEXAMETHASONE [Concomitant]
     Active Substance: DEXAMETHASONE
     Indication: Plasma cell myeloma refractory
     Dosage: 40 MG, QD
     Dates: start: 20220211, end: 20220211
  8. DEXAMETHASONE [Concomitant]
     Active Substance: DEXAMETHASONE
     Dosage: 20 MG, QD
     Dates: start: 20221029, end: 20221029

REACTIONS (1)
  - Neutropenia [Not Recovered/Not Resolved]

NARRATIVE: CASE EVENT DATE: 20221121
